FAERS Safety Report 24112007 (Version 6)
Quarter: 2024Q3

REPORT INFORMATION
  Report Type: Report from Study
  Country: CA (occurrence: CA)
  Receive Date: 20240719
  Receipt Date: 20240924
  Transmission Date: 20241016
  Serious: Yes (Hospitalization, Other)
  Sender: TAKEDA
  Company Number: CA-TAKEDA-2024TUS072159

PATIENT
  Age: 74 Year
  Sex: Female
  Weight: 77 kg

DRUGS (26)
  1. .ALPHA.1-PROTEINASE INHIBITOR HUMAN [Interacting]
     Active Substance: .ALPHA.1-PROTEINASE INHIBITOR HUMAN
     Indication: Alpha-1 antitrypsin deficiency
     Dosage: 5000 MILLIGRAM, 1/WEEK
     Route: 050
     Dates: start: 20240626
  2. .ALPHA.1-PROTEINASE INHIBITOR HUMAN [Interacting]
     Active Substance: .ALPHA.1-PROTEINASE INHIBITOR HUMAN
     Indication: Alpha-1 antitrypsin deficiency
     Dosage: 5000 MILLIGRAM, 1/WEEK
     Route: 050
     Dates: start: 20240626
  3. .ALPHA.1-PROTEINASE INHIBITOR HUMAN [Interacting]
     Active Substance: .ALPHA.1-PROTEINASE INHIBITOR HUMAN
     Dosage: 10000 MILLIGRAM
     Route: 050
     Dates: start: 20240715
  4. .ALPHA.1-PROTEINASE INHIBITOR HUMAN [Interacting]
     Active Substance: .ALPHA.1-PROTEINASE INHIBITOR HUMAN
     Dosage: 10000 MILLIGRAM
     Route: 050
     Dates: start: 20240715
  5. .ALPHA.1-PROTEINASE INHIBITOR HUMAN [Interacting]
     Active Substance: .ALPHA.1-PROTEINASE INHIBITOR HUMAN
     Dosage: 5 DOSAGE FORM, 1/WEEK
     Route: 050
  6. .ALPHA.1-PROTEINASE INHIBITOR HUMAN [Interacting]
     Active Substance: .ALPHA.1-PROTEINASE INHIBITOR HUMAN
     Dosage: 5 DOSAGE FORM, 1/WEEK
     Route: 050
  7. .ALPHA.1-PROTEINASE INHIBITOR HUMAN [Interacting]
     Active Substance: .ALPHA.1-PROTEINASE INHIBITOR HUMAN
     Dosage: UNK, 1/WEEK
     Route: 042
  8. .ALPHA.1-PROTEINASE INHIBITOR HUMAN [Interacting]
     Active Substance: .ALPHA.1-PROTEINASE INHIBITOR HUMAN
     Dosage: UNK, 1/WEEK
     Route: 042
  9. .ALPHA.1-PROTEINASE INHIBITOR HUMAN [Interacting]
     Active Substance: .ALPHA.1-PROTEINASE INHIBITOR HUMAN
     Dosage: UNK UNK, 1/WEEK
     Route: 042
  10. .ALPHA.1-PROTEINASE INHIBITOR HUMAN [Interacting]
     Active Substance: .ALPHA.1-PROTEINASE INHIBITOR HUMAN
     Dosage: UNK UNK, 1/WEEK
     Route: 042
  11. CODEINE [Interacting]
     Active Substance: CODEINE
     Indication: Product used for unknown indication
     Dosage: UNK
     Route: 065
  12. ACETAMINOPHEN [Suspect]
     Active Substance: ACETAMINOPHEN
     Indication: Product used for unknown indication
     Dosage: UNK
     Route: 065
     Dates: start: 20240801
  13. SYMBICORT [Concomitant]
     Active Substance: BUDESONIDE\FORMOTEROL FUMARATE DIHYDRATE
     Dosage: UNK, BID
     Route: 065
  14. VENTOLIN [Concomitant]
     Active Substance: ALBUTEROL SULFATE
     Dosage: UNK
     Route: 065
  15. SPIRIVA [Concomitant]
     Active Substance: TIOTROPIUM BROMIDE MONOHYDRATE
     Dosage: UNK, BID
     Route: 065
  16. LOSEC [Concomitant]
     Active Substance: OMEPRAZOLE
     Dosage: 20 MILLIGRAM, BID
     Route: 065
  17. CALCIUM [Concomitant]
     Active Substance: CALCIUM
     Dosage: 500 MILLIGRAM
     Route: 065
  18. PROLASTIN [Concomitant]
     Active Substance: .ALPHA.1-PROTEINASE INHIBITOR HUMAN
     Dosage: UNK
     Route: 065
  19. BISOPROLOL [Concomitant]
     Active Substance: BISOPROLOL\BISOPROLOL FUMARATE
     Dosage: 2.5 MILLIGRAM
     Route: 065
  20. GABAPENTIN [Concomitant]
     Active Substance: GABAPENTIN
     Dosage: 250 MILLIGRAM
     Route: 065
  21. GABAPENTIN [Concomitant]
     Active Substance: GABAPENTIN
     Dosage: 600 MILLIGRAM
     Route: 065
  22. VITAMIN D [Concomitant]
     Active Substance: VITAMIN D NOS
     Dosage: 1000 MILLIGRAM
     Route: 065
  23. FERROUS FUMARATE [Concomitant]
     Active Substance: FERROUS FUMARATE
     Dosage: 300 MILLIGRAM
     Route: 065
  24. CLOBETASOL [Concomitant]
     Active Substance: CLOBETASOL
     Dosage: UNK
  25. DIOVAN [Concomitant]
     Active Substance: VALSARTAN
     Dosage: 12.5 MILLIGRAM
     Route: 065
  26. ENSTILAR [Concomitant]
     Active Substance: BETAMETHASONE DIPROPIONATE\CALCIPOTRIENE HYDRATE
     Dosage: UNK
     Route: 065

REACTIONS (9)
  - Incoherent [Unknown]
  - Respiratory disorder [Recovered/Resolved with Sequelae]
  - Pneumonia [Recovering/Resolving]
  - Drug interaction [Unknown]
  - Overdose [Unknown]
  - Inappropriate schedule of product administration [Unknown]
  - Blood pressure increased [Unknown]
  - Chronic obstructive pulmonary disease [Unknown]
  - Back pain [Unknown]

NARRATIVE: CASE EVENT DATE: 20240708
